FAERS Safety Report 9283301 (Version 3)
Quarter: 2013Q3

REPORT INFORMATION
  Report Type: Spontaneous
  Country: IT (occurrence: None)
  Receive Date: 20130503
  Receipt Date: 20130722
  Transmission Date: 20140515
  Serious: Yes (Hospitalization, Other)
  Sender: FDA-Public Use
  Company Number: ACO_35820_2013

PATIENT
  Age: 41 Year
  Sex: Male

DRUGS (5)
  1. FAMPRIDINE-SR [Suspect]
     Indication: MULTIPLE SCLEROSIS
     Route: 048
     Dates: start: 20120618, end: 20130415
  2. AZATHIOPRINE (AZATHIOPRINE SODIUM) [Concomitant]
  3. BACLOFEN (BACLOFEN) [Concomitant]
  4. PANTOPRAZOLE (PANTOPRAZOLE) [Concomitant]
  5. TAPENTADOL [Concomitant]

REACTIONS (2)
  - Hip fracture [None]
  - Fall [None]
